FAERS Safety Report 11942810 (Version 3)
Quarter: 2016Q1

REPORT INFORMATION
  Report Type: Report from Study
  Country: GB (occurrence: GB)
  Receive Date: 20160125
  Receipt Date: 20160229
  Transmission Date: 20160526
  Serious: Yes (Hospitalization)
  Sender: FDA-Public Use
  Company Number: GB-ROCHE-1696628

PATIENT
  Sex: Female

DRUGS (6)
  1. OMEPRAZOLE. [Concomitant]
     Active Substance: OMEPRAZOLE
  2. CANDESARTAN [Concomitant]
     Active Substance: CANDESARTAN
  3. RITUXIMAB [Suspect]
     Active Substance: RITUXIMAB
     Indication: RHEUMATOID ARTHRITIS
     Route: 042
     Dates: start: 20081023
  4. PREDNISOLONE. [Concomitant]
     Active Substance: PREDNISOLONE
  5. TRAMADOL. [Concomitant]
     Active Substance: TRAMADOL
  6. NABUMETONE. [Concomitant]
     Active Substance: NABUMETONE

REACTIONS (4)
  - Lower respiratory tract infection [Recovered/Resolved]
  - Confusional state [Recovered/Resolved]
  - Urinary tract infection [Recovered/Resolved]
  - Acute myocardial infarction [Unknown]
